FAERS Safety Report 5074309-5 (Version None)
Quarter: 2006Q3

REPORT INFORMATION
  Report Type: 
  Country: None (occurrence: None)
  Receive Date: 20060808
  Receipt Date: 20050707
  Transmission Date: 20061208
  Serious: No
  Sender: FDA-Public Use
  Company Number: US-AMGEN-KDL142706

PATIENT
  Age: 80 Year
  Sex: Male

DRUGS (6)
  1. PROCRIT [Suspect]
     Indication: PRE-EXISTING DISEASE
     Route: 058
     Dates: start: 20041201
  2. NORVASC [Concomitant]
  3. ATENOLOL [Concomitant]
  4. LIPITOR [Concomitant]
  5. VITAMIN CAP [Concomitant]
     Route: 058
  6. VITAMIN E [Concomitant]

REACTIONS (1)
  - LABORATORY TEST ABNORMAL [None]
